FAERS Safety Report 5226320-9 (Version None)
Quarter: 2007Q1

REPORT INFORMATION
  Report Type: 
  Country: None (occurrence: None)
  Receive Date: 20070201
  Receipt Date: 20070125
  Transmission Date: 20070707
  Serious: Yes (Death, Hospitalization)
  Sender: FDA-Public Use
  Company Number: FR-AVENTIS-200612364FR

PATIENT
  Age: 74 Year
  Sex: Male
  Weight: 59 kg

DRUGS (10)
  1. TAXOTERE [Suspect]
     Indication: BRONCHIAL CARCINOMA
     Route: 042
     Dates: start: 20060517, end: 20060517
  2. CISPLATIN [Suspect]
     Indication: BRONCHIAL CARCINOMA
     Route: 042
     Dates: start: 20060517, end: 20060517
  3. RADIOTHERAPY [Suspect]
     Indication: BRONCHIAL CARCINOMA
  4. MONO-TILDIEM [Concomitant]
     Route: 048
  5. CORVASAL                           /00547101/ [Concomitant]
     Route: 048
  6. KARDEGIC                           /00002703/ [Concomitant]
     Route: 048
  7. OXEOL [Concomitant]
     Route: 048
     Dates: start: 20060101
  8. DAFALGAN                           /00020001/ [Concomitant]
     Route: 048
     Dates: start: 20060101
  9. BRICANYL [Concomitant]
     Indication: BRONCHOSPASM
     Dates: start: 20060101
  10. ATROVENT [Concomitant]
     Indication: BRONCHOSPASM
     Dates: start: 20060101

REACTIONS (7)
  - APHASIA [None]
  - ATRIAL FIBRILLATION [None]
  - CEREBROVASCULAR ACCIDENT [None]
  - HEMIPLEGIA [None]
  - LUNG INFECTION [None]
  - PULMONARY EMBOLISM [None]
  - TACHYARRHYTHMIA [None]
